FAERS Safety Report 7178144-3 (Version None)
Quarter: 2010Q4

REPORT INFORMATION
  Report Type: 
  Country: None (occurrence: None)
  Receive Date: 20101220
  Receipt Date: 20101209
  Transmission Date: 20110411
  Serious: Yes (Other)
  Sender: FDA-Public Use
  Company Number: B0676263A

PATIENT
  Sex: Female

DRUGS (3)
  1. PAXIL [Suspect]
     Indication: DEPRESSION
     Route: 048
     Dates: end: 20100311
  2. REMERON [Suspect]
     Indication: DEPRESSION
     Route: 065
     Dates: start: 20100302, end: 20100318
  3. SULPIRIDE [Concomitant]
     Dosage: 50MG PER DAY
     Route: 065
     Dates: end: 20100204

REACTIONS (6)
  - ABNORMAL BEHAVIOUR [None]
  - DRUG WITHDRAWAL SYNDROME [None]
  - HYPOMANIA [None]
  - PERSECUTORY DELUSION [None]
  - THIRST [None]
  - TREMOR [None]
